FAERS Safety Report 9483616 (Version 2)
Quarter: 2013Q3

REPORT INFORMATION
  Report Type: Spontaneous
  Country: CA (occurrence: CA)
  Receive Date: 20130828
  Receipt Date: 20130828
  Transmission Date: 20140515
  Serious: Yes (Hospitalization)
  Sender: FDA-Public Use
  Company Number: CA-AMGEN-KDL252583

PATIENT
  Age: 81 Year
  Sex: Male

DRUGS (15)
  1. ENBREL [Suspect]
     Indication: PRODUCT USED FOR UNKNOWN INDICATION
     Dosage: UNK UNK, QWK
     Route: 058
     Dates: start: 20061227
  2. WARFARIN SODIUM [Concomitant]
     Dosage: 2 MG, QOD
     Route: 048
  3. WARFARIN SODIUM [Concomitant]
     Dosage: 3 MG, QOD
     Route: 048
  4. ETIDRONATE DISODIUM [Concomitant]
  5. ERGOCALCIFEROL [Concomitant]
     Dosage: 1000 IU, QD
  6. FUROSEMIDE [Concomitant]
     Dosage: 40 MG, QD
  7. FOLIC ACID [Concomitant]
     Dosage: 5 MG, QD
  8. SIMVASTATIN [Concomitant]
     Dosage: 40 MG, QD
  9. GLIBENCLAMIDE [Concomitant]
  10. FOLINIC ACID [Concomitant]
  11. FERROUS GLUCONATE [Concomitant]
  12. ACETYLSALICYLIC ACID [Concomitant]
     Dosage: 81 MG, QD
  13. BISOPROLOL [Concomitant]
  14. DOCUSATE SODIUM [Concomitant]
  15. POTASSIUM [Concomitant]

REACTIONS (3)
  - Hip arthroplasty [Recovered/Resolved]
  - Incision site infection [Unknown]
  - Pharyngitis streptococcal [Not Recovered/Not Resolved]
